FAERS Safety Report 5035716-X (Version None)
Quarter: 2006Q2

REPORT INFORMATION
  Report Type: 
  Country: None (occurrence: None)
  Receive Date: 20060627
  Receipt Date: 20060616
  Transmission Date: 20061013
  Serious: Yes (Hospitalization, Other)
  Sender: FDA-Public Use
  Company Number: ES-GILEAD-2006-0009753

PATIENT
  Age: 37 Year
  Sex: Male

DRUGS (2)
  1. VIREAD [Suspect]
     Indication: HIV INFECTION
     Dates: start: 20030201, end: 20040901
  2. LOPINAVIR W/RITONAVIR [Concomitant]
     Indication: HIV INFECTION
     Dates: start: 20030201, end: 20040901

REACTIONS (8)
  - BLOOD ALKALINE PHOSPHATASE INCREASED [None]
  - BLOOD PARATHYROID HORMONE INCREASED [None]
  - BONE PAIN [None]
  - FANCONI SYNDROME ACQUIRED [None]
  - NEPHRITIS INTERSTITIAL [None]
  - OSTEOMALACIA [None]
  - RENAL FAILURE [None]
  - TUBULOINTERSTITIAL NEPHRITIS [None]
